FAERS Safety Report 6291451-1 (Version None)
Quarter: 2009Q3

REPORT INFORMATION
  Report Type: 
  Country: None (occurrence: None)
  Receive Date: 20090729
  Receipt Date: 20090729
  Transmission Date: 20100115
  Serious: Yes (Disabling)
  Sender: FDA-Public Use
  Company Number: None

PATIENT
  Age: 64 Year
  Sex: Female

DRUGS (2)
  1. BACTRIM DS [Suspect]
     Indication: PHARYNGITIS
     Dosage: 1 TAB TWICE A DAY PO
     Route: 048
     Dates: start: 20090708, end: 20090717
  2. BACTRIM DS [Suspect]
     Indication: SINUSITIS
     Dosage: 1 TAB TWICE A DAY PO
     Route: 048
     Dates: start: 20090708, end: 20090717

REACTIONS (3)
  - COUGH [None]
  - DYSPNOEA [None]
  - RASH [None]
